FAERS Safety Report 12685034 (Version 3)
Quarter: 2016Q4

REPORT INFORMATION
  Report Type: Spontaneous
  Country: US (occurrence: US)
  Receive Date: 20160825
  Receipt Date: 20161006
  Transmission Date: 20170207
  Serious: No
  Sender: FDA-Public Use
  Company Number: US-009507513-1608USA010025

PATIENT
  Age: 50 Year
  Sex: Female

DRUGS (2)
  1. EMEND [Suspect]
     Active Substance: APREPITANT
     Indication: PROPHYLAXIS OF NAUSEA AND VOMITING
     Dosage: 1ST DAY OF CHEMOTHERAPY 125 MG, ONCE
     Route: 048
     Dates: start: 201412, end: 201412
  2. EMEND [Suspect]
     Active Substance: APREPITANT
     Dosage: 2 DAYS 80 MG, DAILY
     Route: 048
     Dates: start: 2014, end: 2014

REACTIONS (1)
  - Therapeutic response unexpected [Unknown]

NARRATIVE: CASE EVENT DATE: 201412
